FAERS Safety Report 21663183 (Version 1)
Quarter: 2022Q4

REPORT INFORMATION
  Report Type: Spontaneous
  Country: CA (occurrence: CA)
  Receive Date: 20221130
  Receipt Date: 20221130
  Transmission Date: 20230112
  Serious: Yes (Other)
  Sender: FDA-Public Use
  Company Number: CA-PFIZER INC-202101049731

PATIENT
  Age: 30 Year
  Sex: Male
  Weight: 71 kg

DRUGS (2)
  1. XELJANZ [Suspect]
     Active Substance: TOFACITINIB CITRATE
     Indication: Crohn^s disease
     Dosage: 10 MG, 2X/DAY INDUCTION FOR 8 WEEKS (THEN 5 MG 2X/DAY)
     Route: 048
     Dates: start: 20220410
  2. XELJANZ [Suspect]
     Active Substance: TOFACITINIB CITRATE
     Dosage: 5 MG, 2X/DAY
     Route: 048
     Dates: start: 2022

REACTIONS (6)
  - Haematochezia [Unknown]
  - Drug ineffective for unapproved indication [Unknown]
  - Bone pain [Unknown]
  - Weight increased [Unknown]
  - Stenosis [Unknown]
  - Off label use [Unknown]

NARRATIVE: CASE EVENT DATE: 20220101
